FAERS Safety Report 9813920 (Version 1)
Quarter: 2014Q1

REPORT INFORMATION
  Report Type: Spontaneous
  Country: US (occurrence: US)
  Receive Date: 20140113
  Receipt Date: 20140113
  Transmission Date: 20141002
  Serious: Yes (Life-Threatening, Other)
  Sender: FDA-Public Use
  Company Number: PHHY2014US001714

PATIENT
  Sex: Female

DRUGS (7)
  1. XOLAIR [Suspect]
  2. XOLAIR [Suspect]
  3. XOLAIR [Suspect]
  4. BUDESONIDE [Suspect]
  5. PATANASE [Concomitant]
     Dosage: UKN
  6. CYTOMEL [Concomitant]
     Dosage: UKN
  7. ALBUTEROL [Concomitant]
     Dosage: UKN

REACTIONS (5)
  - Apparent death [Unknown]
  - H1N1 influenza [Unknown]
  - Arthralgia [Unknown]
  - Coeliac disease [Unknown]
  - Drug intolerance [Unknown]
